FAERS Safety Report 17731715 (Version 1)
Quarter: 2020Q2

REPORT INFORMATION
  Report Type: Spontaneous
  Country: US (occurrence: US)
  Receive Date: 20200501
  Receipt Date: 20200501
  Transmission Date: 20200714
  Serious: No
  Sender: FDA-Public Use
  Company Number: US-ELI_LILLY_AND_COMPANY-US202004010689

PATIENT
  Age: 56 Year
  Sex: Female

DRUGS (1)
  1. TALTZ [Suspect]
     Active Substance: IXEKIZUMAB
     Indication: PSORIATIC ARTHROPATHY
     Dosage: 80 MG, BID, VIA LOADING DOSE
     Route: 065
     Dates: start: 20200413

REACTIONS (5)
  - Headache [Unknown]
  - Vomiting [Recovered/Resolved]
  - Nausea [Unknown]
  - Viral infection [Unknown]
  - Asthenia [Unknown]

NARRATIVE: CASE EVENT DATE: 20200423
